FAERS Safety Report 17485103 (Version 2)
Quarter: 2022Q2

REPORT INFORMATION
  Report Type: Report from Study
  Country: US (occurrence: US)
  Receive Date: 20200302
  Receipt Date: 20220625
  Transmission Date: 20220720
  Serious: Yes (Hospitalization)
  Sender: FDA-Public Use
  Company Number: US-SHIRE-US202007310

PATIENT
  Age: 61 Year
  Sex: Female

DRUGS (8)
  1. TEDUGLUTIDE [Suspect]
     Active Substance: TEDUGLUTIDE
     Indication: Short-bowel syndrome
     Dosage: 0.26 MILLIGRAM, QD
     Route: 058
     Dates: start: 20190429
  2. TEDUGLUTIDE [Suspect]
     Active Substance: TEDUGLUTIDE
     Indication: Short-bowel syndrome
     Dosage: 0.26 MILLIGRAM, QD
     Route: 058
     Dates: start: 20190429
  3. TEDUGLUTIDE [Suspect]
     Active Substance: TEDUGLUTIDE
     Indication: Short-bowel syndrome
     Dosage: 0.26 MILLIGRAM, QD
     Route: 058
     Dates: start: 20190429
  4. TEDUGLUTIDE [Suspect]
     Active Substance: TEDUGLUTIDE
     Indication: Short-bowel syndrome
     Dosage: 0.26 MILLIGRAM, QD
     Route: 058
     Dates: start: 20190429
  5. TEDUGLUTIDE [Suspect]
     Active Substance: TEDUGLUTIDE
     Dosage: 2.25 MILLIGRAM, QD
     Route: 058
     Dates: start: 20190429
  6. TEDUGLUTIDE [Suspect]
     Active Substance: TEDUGLUTIDE
     Dosage: 2.25 MILLIGRAM, QD
     Route: 058
     Dates: start: 20190429
  7. TEDUGLUTIDE [Suspect]
     Active Substance: TEDUGLUTIDE
     Dosage: 2.25 MILLIGRAM, QD
     Route: 058
     Dates: start: 20190429
  8. TEDUGLUTIDE [Suspect]
     Active Substance: TEDUGLUTIDE
     Dosage: 2.25 MILLIGRAM, QD
     Route: 058
     Dates: start: 20190429

REACTIONS (7)
  - Dehydration [Recovering/Resolving]
  - Weight increased [Unknown]
  - Faecal volume decreased [Unknown]
  - Injection site bruising [Unknown]
  - Injection site pain [Unknown]
  - Haemorrhoids [Not Recovered/Not Resolved]
  - Inappropriate schedule of product administration [Not Recovered/Not Resolved]

NARRATIVE: CASE EVENT DATE: 20200128
